FAERS Safety Report 6996899-5 (Version None)
Quarter: 2010Q3

REPORT INFORMATION
  Report Type: 
  Country: None (occurrence: None)
  Receive Date: 20100918
  Receipt Date: 20090730
  Transmission Date: 20110219
  Serious: No
  Sender: FDA-Public Use
  Company Number: US-WYE-H10415509

PATIENT
  Sex: Female
  Weight: 74.91 kg

DRUGS (2)
  1. CORDARONE [Suspect]
     Indication: ARRHYTHMIA
     Route: 048
     Dates: start: 20090727
  2. LISINOPRIL [Concomitant]
     Indication: HYPERTENSION

REACTIONS (3)
  - GAIT DISTURBANCE [None]
  - LIP SWELLING [None]
  - PRURITUS GENERALISED [None]
